FAERS Safety Report 4834474-9 (Version None)
Quarter: 2005Q4

REPORT INFORMATION
  Report Type: 
  Country: None (occurrence: None)
  Receive Date: 20051122
  Receipt Date: 20041213
  Transmission Date: 20060501
  Serious: No
  Sender: FDA-Public Use
  Company Number: US-BRISTOL-MYERS SQUIBB COMPANY-12795688

PATIENT
  Age: 71 Year
  Sex: Female

DRUGS (7)
  1. PRAVACHOL [Suspect]
     Indication: BLOOD CHOLESTEROL INCREASED
     Dosage: INITIAL DOSE 40 MG/DAY, INCR TO 80MG/DAY ON 29-MAR-2004, DECR BACK TO 40 MG/DAY SEP-2004
     Route: 048
  2. SHAKLEE VITA-LEA [Concomitant]
  3. COQHEART [Concomitant]
  4. EPA DHA [Concomitant]
  5. ASCORBIC ACID [Concomitant]
  6. CALCIUM GLUCONATE [Concomitant]
  7. MAGNESIUM [Concomitant]

REACTIONS (2)
  - MUSCLE SPASMS [None]
  - POLLAKIURIA [None]
